FAERS Safety Report 7374897-X (Version None)
Quarter: 2011Q1

REPORT INFORMATION
  Report Type: 
  Country: None (occurrence: None)
  Receive Date: 20110325
  Receipt Date: 20110314
  Transmission Date: 20110831
  Serious: Yes (Other)
  Sender: FDA-Public Use
  Company Number: HK-SANOFI-AVENTIS-2011SA017045

PATIENT

DRUGS (2)
  1. OXALIPLATIN [Suspect]
     Dosage: ON DAY 1 ONCE EVERY THREE WEEKS FOR 1-6 CYCLES
     Route: 042
  2. CAPECITABINE [Suspect]
     Dosage: ON DAY 1 AND 14 FOR 1-6 CYCLES
     Route: 048

REACTIONS (7)
  - HAEMORRHAGE [None]
  - ELECTROLYTE IMBALANCE [None]
  - ANAEMIA [None]
  - SEPSIS [None]
  - NEUTROPENIA [None]
  - THROMBOCYTOPENIA [None]
  - PYREXIA [None]
